FAERS Safety Report 7737974-7 (Version None)
Quarter: 2011Q3

REPORT INFORMATION
  Report Type: 
  Country: None (occurrence: None)
  Receive Date: 20110908
  Receipt Date: 20110906
  Transmission Date: 20111222
  Serious: Yes (Hospitalization)
  Sender: FDA-Public Use
  Company Number: US-ELI_LILLY_AND_COMPANY-US200907007166

PATIENT
  Sex: Female

DRUGS (12)
  1. LISINOPRIL [Concomitant]
     Dosage: 10 MG, DAILY (1/D)
  2. NITROGLYCERIN [Concomitant]
     Dosage: 1 MG, EVERY 6 HRS
     Route: 061
  3. SIMVASTATIN [Concomitant]
     Dosage: 40 MG, EACH EVENING
  4. METFORMIN HCL [Concomitant]
     Dosage: 850 MG, 2/D
     Dates: end: 20080812
  5. METFORMIN HCL [Concomitant]
     Dosage: 1000 MG, 2/D
     Dates: start: 20080812, end: 20080812
  6. METFORMIN HCL [Concomitant]
     Dosage: 500 MG, 2/D
     Route: 048
     Dates: start: 20080814
  7. METOPROLOL TARTRATE [Concomitant]
     Dosage: 25 MG, 2/D
  8. ZOLPIDEM [Concomitant]
     Indication: INSOMNIA
     Dosage: 5 MG, 6/W
  9. NEXIUM [Concomitant]
     Dosage: 40 MG, DAILY (1/D)
  10. TYLENOL (CAPLET) [Concomitant]
     Indication: PAIN
     Dosage: 650 MG, AS NEEDED
  11. BYETTA [Suspect]
     Dosage: 10 U, 2/D
     Route: 058
     Dates: end: 20080812
  12. COUMADIN [Concomitant]
     Dosage: UNK, DAILY (1/D)

REACTIONS (4)
  - THYROIDECTOMY [None]
  - PANCREATITIS ACUTE [None]
  - HYPOTHYROIDISM [None]
  - CHOLELITHIASIS [None]
